FAERS Safety Report 24638586 (Version 1)
Quarter: 2024Q4

REPORT INFORMATION
  Report Type: Spontaneous
  Country: GB (occurrence: GB)
  Receive Date: 20241119
  Receipt Date: 20241119
  Transmission Date: 20250115
  Serious: Yes (Other)
  Sender: BIOVITRUM
  Company Number: GB-AstraZeneca-CH-00733919A

PATIENT
  Age: 2 Month
  Sex: Male
  Weight: 4.73 kg

DRUGS (3)
  1. SYNAGIS [Suspect]
     Active Substance: PALIVIZUMAB
     Indication: Antiviral prophylaxis
     Dosage: UNKNOWN
     Dates: start: 20241012
  2. SPIRONOLACTONE [Concomitant]
     Active Substance: SPIRONOLACTONE
     Indication: Product used for unknown indication
     Dosage: 2 MILLIGRAM
  3. FUROSEMIDE [Concomitant]
     Active Substance: FUROSEMIDE
     Indication: Product used for unknown indication
     Dosage: 2 MILLIGRAM

REACTIONS (3)
  - Rash [Recovered/Resolved]
  - Ill-defined disorder [Unknown]
  - Antiviral prophylaxis [Unknown]

NARRATIVE: CASE EVENT DATE: 20241012
